FAERS Safety Report 12670959 (Version 1)
Quarter: 2016Q3

REPORT INFORMATION
  Report Type: Spontaneous
  Country: US (occurrence: US)
  Receive Date: 20160822
  Receipt Date: 20160822
  Transmission Date: 20161109
  Serious: No
  Sender: FDA-Public Use
  Company Number: US-JAZZ-2016-US-006139

PATIENT
  Sex: Female

DRUGS (13)
  1. CLONAZEPAM. [Concomitant]
     Active Substance: CLONAZEPAM
  2. NASACORT [Concomitant]
     Active Substance: TRIAMCINOLONE ACETONIDE
  3. PROZAC [Concomitant]
     Active Substance: FLUOXETINE HYDROCHLORIDE
  4. XYREM [Suspect]
     Active Substance: SODIUM OXYBATE
     Dosage: DOSE ADJUSTMENTS
     Route: 048
  5. XYREM [Suspect]
     Active Substance: SODIUM OXYBATE
     Indication: NARCOLEPSY
     Dosage: 2.25 G, BID
     Route: 048
     Dates: start: 201109, end: 2011
  6. ZANTAC [Concomitant]
     Active Substance: RANITIDINE HYDROCHLORIDE
  7. VALIUM [Concomitant]
     Active Substance: DIAZEPAM
  8. FINACEA [Concomitant]
     Active Substance: AZELAIC ACID
  9. PATADAY [Concomitant]
     Active Substance: OLOPATADINE HYDROCHLORIDE
  10. RITALIN [Concomitant]
     Active Substance: METHYLPHENIDATE HYDROCHLORIDE
  11. XANAX [Concomitant]
     Active Substance: ALPRAZOLAM
  12. XYREM [Suspect]
     Active Substance: SODIUM OXYBATE
     Dosage: 4.5 G, BID
     Route: 048
     Dates: start: 201305
  13. OMEPRAZOLE. [Concomitant]
     Active Substance: OMEPRAZOLE

REACTIONS (1)
  - Gastrooesophageal reflux disease [Not Recovered/Not Resolved]
